FAERS Safety Report 8189783-5 (Version None)
Quarter: 2012Q1

REPORT INFORMATION
  Report Type: 
  Country: None (occurrence: None)
  Receive Date: 20120307
  Receipt Date: 20110308
  Transmission Date: 20120608
  Serious: No
  Sender: FDA-Public Use
  Company Number: US-GLAXOSMITHKLINE-A0917170A

PATIENT
  Age: 48 Year
  Sex: Female

DRUGS (10)
  1. ROPINIROLE [Suspect]
     Indication: RESTLESS LEGS SYNDROME
     Dosage: 2MG PER DAY
     Route: 048
     Dates: start: 20100101
  2. HRT [Concomitant]
  3. HYDROXYCHLOROQUINE SULFATE [Concomitant]
  4. ADVAIR DISKUS 100/50 [Concomitant]
  5. ALBUTEROL [Concomitant]
  6. AMBIEN [Concomitant]
  7. SYNTHROID [Concomitant]
  8. LEXAPRO [Concomitant]
  9. REQUIP [Suspect]
     Indication: RESTLESS LEGS SYNDROME
     Dosage: 2MG PER DAY
     Route: 048
     Dates: start: 20090101
  10. DILTIAZEM HCL [Concomitant]

REACTIONS (2)
  - THEFT [None]
  - OBSESSIVE-COMPULSIVE DISORDER [None]
